FAERS Safety Report 9454681 (Version 1)
Quarter: 2013Q3

REPORT INFORMATION
  Report Type: Spontaneous
  Country: US (occurrence: US)
  Receive Date: 20130812
  Receipt Date: 20130812
  Transmission Date: 20140515
  Serious: Yes (Hospitalization)
  Sender: FDA-Public Use
  Company Number: PHEH2013US016544

PATIENT
  Sex: Male

DRUGS (7)
  1. EXELON PATCH [Suspect]
     Dosage: 13.3 MG, UNK
     Dates: end: 20130422
  2. LISINOPRIL [Suspect]
  3. ATENOLOL [Suspect]
     Dosage: 50 MG, QD
  4. GEMFIBROZIL [Suspect]
     Dosage: 50 MG, QD
  5. CLOPIDOGREL [Suspect]
     Dosage: 75 MG, DAILY
  6. SEROQUEL [Suspect]
     Dosage: 25 MG, UNK
  7. NAMENDA [Suspect]
     Dosage: 10 MG, BID

REACTIONS (1)
  - Agitation [Unknown]
